FAERS Safety Report 10467529 (Version 2)
Quarter: 2014Q3

REPORT INFORMATION
  Report Type: Spontaneous
  Country: US (occurrence: US)
  Receive Date: 20140922
  Receipt Date: 20140922
  Transmission Date: 20150326
  Serious: Yes (Hospitalization)
  Sender: FDA-Public Use
  Company Number: US-ACTELION-A-US2013-89388

PATIENT
  Age: 40 Year
  Sex: Female

DRUGS (3)
  1. VELETRI [Suspect]
     Active Substance: EPOPROSTENOL
     Indication: PULMONARY ARTERIAL HYPERTENSION
     Dosage: 9 NG/KG, PER MIN
     Route: 042
     Dates: start: 20130812
  2. VELETRI [Suspect]
     Active Substance: EPOPROSTENOL
     Dosage: 30 NG, UNK
     Route: 042
     Dates: start: 20140731
  3. COUMADIN [Concomitant]
     Active Substance: WARFARIN SODIUM

REACTIONS (8)
  - Dyspnoea [Recovered/Resolved]
  - Device malfunction [Unknown]
  - Fatigue [Recovered/Resolved]
  - Pain in extremity [Unknown]
  - Hyperhidrosis [Recovered/Resolved]
  - Feeling hot [Recovered/Resolved]
  - Paraesthesia [Recovered/Resolved]
  - Malaise [Unknown]
